FAERS Safety Report 8448578-5 (Version None)
Quarter: 2012Q2

REPORT INFORMATION
  Report Type: 
  Country: None (occurrence: None)
  Receive Date: 20120619
  Receipt Date: 20120613
  Transmission Date: 20120825
  Serious: Yes (Death, Other)
  Sender: FDA-Public Use
  Company Number: DE-ROCHE-1078809

PATIENT
  Age: 69 Year
  Sex: Male

DRUGS (5)
  1. PEGINTERFERON ALFA-2A [Suspect]
     Indication: HEPATITIS C
     Dates: start: 20060101, end: 20071201
  2. COPEGUS [Suspect]
     Dates: start: 20120127
  3. PEGINTERFERON ALFA-2A [Suspect]
     Dates: start: 20120127
  4. COPEGUS [Suspect]
     Indication: HEPATITIS C
     Dates: start: 20060101, end: 20071201
  5. TELAPREVIR [Suspect]
     Indication: HEPATITIS C
     Dates: start: 20120127, end: 20120413

REACTIONS (2)
  - ANAEMIA [None]
  - DEATH [None]
